FAERS Safety Report 9713642 (Version 2)
Quarter: 2013Q4

REPORT INFORMATION
  Report Type: Spontaneous
  Country: JP (occurrence: JP)
  Receive Date: 20131126
  Receipt Date: 20131212
  Transmission Date: 20140711
  Serious: Yes (Death)
  Sender: FDA-Public Use
  Company Number: JP-ELI_LILLY_AND_COMPANY-JP201311006764

PATIENT
  Sex: Female

DRUGS (2)
  1. GEMZAR [Suspect]
     Indication: BREAST CANCER RECURRENT
     Dosage: 1000 MG/M2, OTHER
     Route: 042
  2. PACLITAXEL [Concomitant]
     Indication: BREAST CANCER RECURRENT
     Dosage: 100 MG/M2, OTHER

REACTIONS (2)
  - Pneumonia aspiration [Fatal]
  - Vomiting [Unknown]
